FAERS Safety Report 9168537 (Version 3)
Quarter: 2013Q2

REPORT INFORMATION
  Report Type: Spontaneous
  Country: US (occurrence: US)
  Receive Date: 20130318
  Receipt Date: 20130430
  Transmission Date: 20140414
  Serious: No
  Sender: FDA-Public Use
  Company Number: US-ROXANE LABORATORIES, INC.-2013-RO-00319RO

PATIENT
  Sex: 0

DRUGS (1)
  1. FLUTICASONE [Suspect]
     Indication: MIGRAINE PROPHYLAXIS
     Route: 045

REACTIONS (2)
  - Drug ineffective for unapproved indication [Unknown]
  - Product quality issue [Unknown]
